FAERS Safety Report 7368762-1 (Version None)
Quarter: 2011Q1

REPORT INFORMATION
  Report Type: 
  Country: None (occurrence: None)
  Receive Date: 20110321
  Receipt Date: 20110321
  Transmission Date: 20110831
  Serious: Yes (Death, Life-Threatening, Hospitalization, Disabling, Congenital Anomaly, Other)
  Sender: FDA-Public Use
  Company Number: None

PATIENT
  Age: 51 Year
  Sex: Female
  Weight: 106.5953 kg

DRUGS (1)
  1. WOMAN'S STIMULANT LAXATIVE BISAC 5MG PL DEVELOPMENTS WESTBURY, NY [Suspect]
     Indication: CONSTIPATION
     Dosage: 2 TABS OR 10 MG
     Dates: start: 20110316, end: 20110317

REACTIONS (4)
  - ABDOMINAL PAIN [None]
  - NAUSEA [None]
  - PRODUCT CONTAMINATION [None]
  - HYPERHIDROSIS [None]
